FAERS Safety Report 20607608 (Version 1)
Quarter: 2022Q1

REPORT INFORMATION
  Report Type: Spontaneous
  Country: US (occurrence: None)
  Receive Date: 20220316
  Receipt Date: 20220316
  Transmission Date: 20220423
  Serious: Yes (Other)
  Sender: FDA-Public Use
  Company Number: None

PATIENT
  Age: 60 Year
  Sex: Female
  Weight: 108.45 kg

DRUGS (4)
  1. LEVALBUTEROL [Suspect]
     Active Substance: LEVALBUTEROL
     Indication: Asthma
     Dosage: OTHER QUANTITY : 1 INHALATION(S);?FREQUENCY : EVERY 4 HOURS;?
     Route: 055
     Dates: start: 20210727, end: 20220315
  2. DEXILANT [Concomitant]
     Active Substance: DEXLANSOPRAZOLE
  3. PULMICORT TURBUHALER [Concomitant]
     Active Substance: BUDESONIDE
  4. MOTRIN [Concomitant]
     Active Substance: IBUPROFEN

REACTIONS (4)
  - Asthma [None]
  - Musculoskeletal stiffness [None]
  - Dysuria [None]
  - Paralysis [None]

NARRATIVE: CASE EVENT DATE: 20220314
